FAERS Safety Report 5632479-1 (Version None)
Quarter: 2008Q1

REPORT INFORMATION
  Report Type: 
  Country: None (occurrence: None)
  Receive Date: 20080220
  Receipt Date: 20080213
  Transmission Date: 20080703
  Serious: Yes (Other)
  Sender: FDA-Public Use
  Company Number: BE-ABBOTT-08P-013-0436251-00

PATIENT
  Age: 59 Year
  Sex: Female
  Weight: 53 kg

DRUGS (4)
  1. REDUCTIL 15MG [Suspect]
     Indication: OVERWEIGHT
     Dates: start: 20050501, end: 20071001
  2. LORAZEPAM [Concomitant]
     Indication: INSOMNIA
     Dates: start: 19800101
  3. LEVOTHYROXINE SODIUM [Concomitant]
     Indication: HYPOTHYROIDISM
     Dates: start: 19980101
  4. TIBOLONE [Concomitant]
     Indication: MENOPAUSE

REACTIONS (3)
  - DEPRESSION [None]
  - FATIGUE [None]
  - HYPERSOMNIA [None]
